FAERS Safety Report 19070232 (Version 1)
Quarter: 2021Q1

REPORT INFORMATION
  Report Type: Spontaneous
  Country: US (occurrence: US)
  Receive Date: 20210329
  Receipt Date: 20210329
  Transmission Date: 20210420
  Serious: Yes (Hospitalization, Other)
  Sender: FDA-Public Use
  Company Number: US-ANIPHARMA-2021-US-004989

PATIENT
  Age: 28 Year
  Sex: Female

DRUGS (5)
  1. METRONIDAZOLE. [Concomitant]
     Active Substance: METRONIDAZOLE
  2. CEFTRIAXONE. [Concomitant]
     Active Substance: CEFTRIAXONE
  3. VANCOMYCIN HYDROCHLORIDE (NON?SPECIFIC) [Suspect]
     Active Substance: VANCOMYCIN HYDROCHLORIDE
     Indication: INFECTION PROPHYLAXIS
     Dosage: 2 GRAMS
     Route: 051
  4. CEFAZOLIN [Concomitant]
     Active Substance: CEFAZOLIN
  5. TOBRAMYCIN. [Suspect]
     Active Substance: TOBRAMYCIN
     Indication: INFECTION PROPHYLAXIS
     Dosage: 2.4 GRAMS
     Route: 051

REACTIONS (1)
  - Acute generalised exanthematous pustulosis [Recovered/Resolved]
